FAERS Safety Report 5359796-7 (Version None)
Quarter: 2007Q2

REPORT INFORMATION
  Report Type: 
  Country: None (occurrence: None)
  Receive Date: 20070530
  Receipt Date: 20070319
  Transmission Date: 20071010
  Serious: No
  Sender: FDA-Public Use
  Company Number: 2007PV031949

PATIENT
  Age: 57 Year
  Sex: Female

DRUGS (8)
  1. BYETTA [Suspect]
     Indication: DIABETES MELLITUS NON-INSULIN-DEPENDENT
     Dosage: 5 MCG; BID; SC
     Route: 058
     Dates: end: 20070318
  2. ZYRTEC [Suspect]
     Dosage: 10 MG; QAM, SC
     Route: 058
     Dates: start: 20070301, end: 20070318
  3. HUMULIN 70/30 [Concomitant]
  4. POTASSIUM CHLORIDE [Concomitant]
  5. BLOOD PRESSURE [Concomitant]
  6. MEDICATION [Concomitant]
  7. FLUID MEDICATION [Concomitant]
  8. HEART MEDICATIONS [Concomitant]

REACTIONS (3)
  - EARLY SATIETY [None]
  - FATIGUE [None]
  - NAUSEA [None]
